FAERS Safety Report 10450112 (Version 1)
Quarter: 2014Q3

REPORT INFORMATION
  Report Type: Spontaneous
  Country: IN (occurrence: IN)
  Receive Date: 20140912
  Receipt Date: 20140912
  Transmission Date: 20150326
  Serious: Yes (Other)
  Sender: FDA-Public Use
  Company Number: IN-ALLERGAN-1419178US

PATIENT
  Age: 39 Year
  Sex: Male

DRUGS (2)
  1. TOPIN [Concomitant]
     Indication: PRODUCT USED FOR UNKNOWN INDICATION
     Dosage: 1 GTT, BID (RIGHT EYE)
     Route: 047
     Dates: start: 20140901
  2. PRED FORTE [Suspect]
     Active Substance: PREDNISOLONE ACETATE
     Indication: PRODUCT USED FOR UNKNOWN INDICATION
     Dosage: 1 GTT, Q2HR
     Route: 047
     Dates: start: 20140901, end: 20140903

REACTIONS (5)
  - Vitritis [Unknown]
  - Iris adhesions [Unknown]
  - Visual impairment [Unknown]
  - Eye pain [Unknown]
  - Anterior chamber cell [Unknown]

NARRATIVE: CASE EVENT DATE: 20140902
